FAERS Safety Report 13924394 (Version 2)
Quarter: 2017Q3

REPORT INFORMATION
  Report Type: Spontaneous
  Country: US (occurrence: US)
  Receive Date: 20170831
  Receipt Date: 20170913
  Transmission Date: 20171127
  Serious: Yes (Hospitalization)
  Sender: FDA-Public Use
  Company Number: PHEH2017US027122

PATIENT
  Sex: Female
  Weight: 48 kg

DRUGS (1)
  1. GILENYA [Suspect]
     Active Substance: FINGOLIMOD HYDROCHLORIDE
     Indication: RELAPSING-REMITTING MULTIPLE SCLEROSIS
     Dosage: UNK
     Route: 065
     Dates: start: 20170120, end: 20170606

REACTIONS (11)
  - Physical disability [Unknown]
  - Lymphocyte count decreased [Unknown]
  - Demyelination [Unknown]
  - Anxiety [Unknown]
  - Multiple sclerosis [Unknown]
  - Ataxia [Unknown]
  - Muscular weakness [Unknown]
  - Bronchitis [Unknown]
  - Malaise [Unknown]
  - Hemiparesis [Unknown]
  - Vision blurred [Unknown]
